FAERS Safety Report 17257405 (Version 1)
Quarter: 2020Q1

REPORT INFORMATION
  Report Type: Report from Study
  Country: EG (occurrence: EG)
  Receive Date: 20200110
  Receipt Date: 20200110
  Transmission Date: 20200409
  Serious: Yes (Other)
  Sender: FDA-Public Use
  Company Number: NVSC2020EG002733

PATIENT
  Age: 41 Year
  Sex: Male

DRUGS (3)
  1. TIRATAM [Concomitant]
     Active Substance: LEVETIRACETAM
     Indication: PRODUCT USED FOR UNKNOWN INDICATION
     Dosage: 500 MG, BID (ONE TAB AT MORNING AND ONE TAB AT NIGHT)
     Route: 065
     Dates: start: 20190810
  2. TASIGNA [Suspect]
     Active Substance: NILOTINIB
     Indication: CHRONIC MYELOID LEUKAEMIA
     Dosage: 800 MG (400 MG AT MORNING AND 400 MG AT NIGHT)
     Route: 065
     Dates: start: 201910
  3. GLIVEC [Suspect]
     Active Substance: IMATINIB MESYLATE
     Indication: CHRONIC MYELOID LEUKAEMIA
     Dosage: 400 MG, QD
     Route: 048
     Dates: start: 20180114, end: 201907

REACTIONS (6)
  - Cataract [Recovered/Resolved]
  - Vomiting [Not Recovered/Not Resolved]
  - Polymerase chain reaction positive [Unknown]
  - Diarrhoea [Not Recovered/Not Resolved]
  - Constipation [Not Recovered/Not Resolved]
  - Muscle spasms [Not Recovered/Not Resolved]

NARRATIVE: CASE EVENT DATE: 201907
